FAERS Safety Report 7248549-0 (Version None)
Quarter: 2011Q1

REPORT INFORMATION
  Report Type: 
  Country: None (occurrence: None)
  Receive Date: 20110127
  Receipt Date: 20110119
  Transmission Date: 20110831
  Serious: Yes (Life-Threatening, Hospitalization)
  Sender: FDA-Public Use
  Company Number: DE-BAYER-2011-004371

PATIENT
  Sex: Male
  Weight: 87 kg

DRUGS (4)
  1. ALISKIREN [Concomitant]
     Indication: HYPERTENSION
     Dosage: UNK
     Dates: start: 20090101
  2. AVELOX [Suspect]
     Indication: UPPER RESPIRATORY TRACT INFECTION
  3. ALISKIREN [Concomitant]
     Dosage: UNK
     Dates: start: 20001127
  4. AVELOX [Suspect]
     Indication: BRONCHITIS
     Dosage: 400 MG, QD
     Dates: start: 20110105, end: 20110105

REACTIONS (7)
  - ANAPHYLACTIC REACTION [None]
  - PRURITUS GENERALISED [None]
  - DIZZINESS [None]
  - FACE OEDEMA [None]
  - RASH [None]
  - LIP SWELLING [None]
  - CARDIOVASCULAR DISORDER [None]
